FAERS Safety Report 10963514 (Version 1)
Quarter: 2015Q1

REPORT INFORMATION
  Report Type: Spontaneous
  Country: US (occurrence: None)
  Receive Date: 20150226
  Receipt Date: 20150226
  Transmission Date: 20150721
  Serious: No
  Sender: FDA-Public Use
  Company Number: TPA2009A02568

PATIENT
  Age: 52 Year
  Sex: Male

DRUGS (3)
  1. TYLENOL PM (DIPHENHYDRAMINE, PARACETAMOL) [Concomitant]
  2. ULORIC [Suspect]
     Active Substance: FEBUXOSTAT
     Indication: GOUT
     Dosage: 1 IN 1 D
     Route: 048
     Dates: start: 200902
  3. TYLENOL ARTHRITIS (PARACETAMOL) [Concomitant]

REACTIONS (2)
  - Rash macular [None]
  - Gout [None]

NARRATIVE: CASE EVENT DATE: 2009
